FAERS Safety Report 15951614 (Version 2)
Quarter: 2020Q4

REPORT INFORMATION
  Report Type: Spontaneous
  Country: US (occurrence: US)
  Receive Date: 20190211
  Receipt Date: 20201120
  Transmission Date: 20210113
  Serious: No
  Sender: FDA-Public Use
  Company Number: US-AMGEN-USASP2019018382

PATIENT
  Sex: Male

DRUGS (5)
  1. OFEV [Concomitant]
     Active Substance: NINTEDANIB
     Dosage: UNK
     Dates: start: 20201108
  2. ADVIL [Concomitant]
     Active Substance: IBUPROFEN
     Dosage: UNK
  3. REPATHA [Suspect]
     Active Substance: EVOLOCUMAB
     Indication: HYPERLIPIDAEMIA
     Dosage: 140 MILLIGRAM, Q2WK
     Route: 058
  4. METOPROLOL SUCCINATE. [Concomitant]
     Active Substance: METOPROLOL SUCCINATE
     Dosage: UNK
  5. REPATHA [Suspect]
     Active Substance: EVOLOCUMAB
     Dosage: 140 MILLIGRAM PER MILLILITRE, Q2WK
     Route: 058

REACTIONS (2)
  - Rash [Recovered/Resolved]
  - Pruritus [Not Recovered/Not Resolved]
